FAERS Safety Report 13535077 (Version 1)
Quarter: 2017Q2

REPORT INFORMATION
  Report Type: Spontaneous
  Country: US (occurrence: US)
  Receive Date: 20170511
  Receipt Date: 20170511
  Transmission Date: 20170830
  Serious: Yes (Other)
  Sender: FDA-Public Use
  Company Number: US-BAYER-2017-085871

PATIENT
  Age: 66 Year
  Sex: Female

DRUGS (3)
  1. CLOPIDOGREL [Suspect]
     Active Substance: CLOPIDOGREL BISULFATE
  2. PANTOPRAZOLE [Concomitant]
     Active Substance: PANTOPRAZOLE
  3. ACETYLSALICYLIC ACID({=100 MG) [Suspect]
     Active Substance: ASPIRIN

REACTIONS (9)
  - Haematochezia [None]
  - Haemoglobin decreased [None]
  - Gastrointestinal haemorrhage [None]
  - Melaena [None]
  - Drug administration error [None]
  - Chills [None]
  - Blood pressure decreased [None]
  - Labelled drug-drug interaction medication error [None]
  - Pyrexia [None]
